FAERS Safety Report 21824299 (Version 1)
Quarter: 2023Q1

REPORT INFORMATION
  Report Type: Report from Study
  Country: CL (occurrence: CL)
  Receive Date: 20230105
  Receipt Date: 20230105
  Transmission Date: 20230417
  Serious: Yes (Life-Threatening, Hospitalization, Other)
  Sender: FDA-Public Use
  Company Number: CL-AMGEN-CHLSL2021179061

PATIENT
  Age: 51 Year
  Sex: Female

DRUGS (2)
  1. ADALIMUMAB [Suspect]
     Active Substance: ADALIMUMAB
     Indication: Crohn^s disease
     Dosage: 40 MILLIGRAM, QWK (0.8ML X 2 INJ X 2 JER SOLUTION INJECTABLE)
     Route: 058
     Dates: start: 20210203
  2. ADALIMUMAB [Suspect]
     Active Substance: ADALIMUMAB
     Dosage: 40 MILLIGRAM, QWK
     Route: 058

REACTIONS (22)
  - Anal abscess [Unknown]
  - Kidney infection [Unknown]
  - Postoperative wound infection [Not Recovered/Not Resolved]
  - Pyrexia [Recovered/Resolved]
  - Breast abscess [Not Recovered/Not Resolved]
  - Rhinitis [Unknown]
  - Headache [Unknown]
  - Crohn^s disease [Recovered/Resolved]
  - Colostomy [Unknown]
  - Anaemia [Recovered/Resolved]
  - Drug ineffective [Unknown]
  - Visual impairment [Unknown]
  - Bronchitis [Unknown]
  - Psoriasis [Recovering/Resolving]
  - Nasopharyngitis [Recovered/Resolved]
  - Urinary tract infection [Unknown]
  - Exposure to SARS-CoV-2 [Unknown]
  - Fall [Unknown]
  - Ligament sprain [Unknown]
  - Pain [Unknown]
  - Inappropriate schedule of product administration [Unknown]
  - Hypersensitivity [Recovered/Resolved]

NARRATIVE: CASE EVENT DATE: 20210501
